FAERS Safety Report 4847428-3 (Version None)
Quarter: 2005Q4

REPORT INFORMATION
  Report Type: 
  Country: None (occurrence: None)
  Receive Date: 20051207
  Receipt Date: 20051122
  Transmission Date: 20060501
  Serious: Yes (Hospitalization)
  Sender: FDA-Public Use
  Company Number: HQWYE725229NOV05

PATIENT
  Sex: Female

DRUGS (3)
  1. ENBREL [Suspect]
     Indication: RHEUMATOID ARTHRITIS
     Route: 058
     Dates: start: 20050621
  2. ISONIAZID [Suspect]
     Dosage: UNKNOWN
     Route: 048
     Dates: end: 20051001
  3. RHEUMATREX [Concomitant]
     Dosage: 2 MG
     Route: 048
     Dates: end: 20051101

REACTIONS (3)
  - HEPATIC ENZYME ABNORMAL [None]
  - HEPATITIS B SURFACE ANTIGEN POSITIVE [None]
  - RASH [None]
